APPROVED DRUG PRODUCT: CLOFIBRATE
Active Ingredient: CLOFIBRATE
Strength: 500MG
Dosage Form/Route: CAPSULE;ORAL
Application: A072191 | Product #001
Applicant: SANDOZ INC
Approved: May 2, 1988 | RLD: No | RS: No | Type: DISCN